FAERS Safety Report 17942630 (Version 7)
Quarter: 2020Q4

REPORT INFORMATION
  Report Type: Spontaneous
  Country: JP (occurrence: JP)
  Receive Date: 20200625
  Receipt Date: 20201228
  Transmission Date: 20210113
  Serious: Yes (Hospitalization, Disabling, Other)
  Sender: FDA-Public Use
  Company Number: JP-ASTELLAS-2020JP008745

PATIENT
  Age: 79 Year
  Sex: Female
  Weight: 38 kg

DRUGS (15)
  1. SUREPOST [Concomitant]
     Active Substance: REPAGLINIDE
     Indication: DIABETES MELLITUS
     Dosage: 0.25 MG, THRICE DAILY
     Route: 048
     Dates: start: 201912, end: 20200615
  2. PREDONINE [Suspect]
     Active Substance: PREDNISOLONE
     Route: 048
     Dates: start: 20200615
  3. ROSUVASTATIN. [Concomitant]
     Active Substance: ROSUVASTATIN
     Indication: DYSLIPIDAEMIA
     Route: 048
  4. BAYASPIRIN [Concomitant]
     Active Substance: ASPIRIN
     Indication: CEREBRAL INFARCTION
     Route: 048
     Dates: end: 20200615
  5. ASTOMARI [Concomitant]
     Indication: INTERSTITIAL LUNG DISEASE
     Route: 048
     Dates: start: 2015, end: 20200615
  6. PREDONINE [Suspect]
     Active Substance: PREDNISOLONE
     Indication: DERMATOMYOSITIS
     Route: 048
     Dates: start: 201507, end: 20200614
  7. MAGMITT [Concomitant]
     Active Substance: MAGNESIUM OXIDE
     Indication: CONSTIPATION
     Route: 048
     Dates: start: 20191128, end: 20200616
  8. PROGRAF [Suspect]
     Active Substance: TACROLIMUS
     Indication: DERMATOMYOSITIS
     Route: 048
     Dates: start: 201912, end: 20200615
  9. PROGRAF [Suspect]
     Active Substance: TACROLIMUS
     Indication: INTERSTITIAL LUNG DISEASE
  10. BAKTAR [Suspect]
     Active Substance: SULFAMETHOXAZOLE\TRIMETHOPRIM
     Indication: PROPHYLAXIS
     Route: 048
     Dates: start: 20191129
  11. ETHYL ICOSAPENTATE [Concomitant]
     Active Substance: ICOSAPENT ETHYL
     Indication: DYSLIPIDAEMIA
     Route: 048
     Dates: end: 20200616
  12. GLOBULIN [Concomitant]
     Indication: PRODUCT USED FOR UNKNOWN INDICATION
     Dosage: UNK UNK, UNKNOWN FREQ.
     Route: 065
     Dates: start: 20190309
  13. BONALON [Concomitant]
     Active Substance: ALENDRONATE SODIUM
     Indication: PROPHYLAXIS
     Route: 048
     Dates: start: 2015, end: 20200615
  14. AMBROXOL HYDROCHLORIDE [Concomitant]
     Active Substance: AMBROXOL HYDROCHLORIDE
     Indication: INTERSTITIAL LUNG DISEASE
     Route: 048
     Dates: start: 2015
  15. RABEPRAZOLE NA [Concomitant]
     Active Substance: RABEPRAZOLE SODIUM
     Indication: PROPHYLAXIS
     Route: 048
     Dates: start: 2015

REACTIONS (8)
  - Oropharyngeal discomfort [Recovered/Resolved]
  - Interstitial lung disease [Recovering/Resolving]
  - Thrombotic microangiopathy [Recovered/Resolved with Sequelae]
  - Acute kidney injury [Recovered/Resolved with Sequelae]
  - Decreased appetite [Recovered/Resolved]
  - Dysphagia [Recovering/Resolving]
  - Dermatomyositis [Recovering/Resolving]
  - Epigastric discomfort [Recovered/Resolved]

NARRATIVE: CASE EVENT DATE: 20200606
